FAERS Safety Report 16438512 (Version 1)
Quarter: 2019Q2

REPORT INFORMATION
  Report Type: Spontaneous
  Country: BR (occurrence: BR)
  Receive Date: 20190617
  Receipt Date: 20190617
  Transmission Date: 20190711
  Serious: Yes (Other)
  Sender: FDA-Public Use
  Company Number: BR-GLAXOSMITHKLINE-BR2019GSK106894

PATIENT
  Age: 4 Year
  Sex: Male

DRUGS (1)
  1. ZINNAT [Suspect]
     Active Substance: CEFUROXIME
     Indication: PNEUMONIA
     Dosage: 4.5 ML, BID (EVERY 12 HOURS)
     Dates: start: 20190609

REACTIONS (4)
  - Pyrexia [Unknown]
  - Pneumonia [Not Recovered/Not Resolved]
  - Product administration error [Unknown]
  - Product storage error [Unknown]

NARRATIVE: CASE EVENT DATE: 20190610
